FAERS Safety Report 17772801 (Version 3)
Quarter: 2020Q3

REPORT INFORMATION
  Report Type: Report from Study
  Country: US (occurrence: US)
  Receive Date: 20200512
  Receipt Date: 20200708
  Transmission Date: 20201102
  Serious: No
  Sender: FDA-Public Use
  Company Number: NVSC2020US128567

PATIENT
  Age: 58 Year
  Sex: Male

DRUGS (1)
  1. COSENTYX [Suspect]
     Active Substance: SECUKINUMAB
     Indication: ANKYLOSING SPONDYLITIS
     Dosage: 150 MG, QMO
     Route: 058
     Dates: start: 20200429

REACTIONS (3)
  - Back pain [Not Recovered/Not Resolved]
  - Muscle spasms [Unknown]
  - Diaphragmalgia [Not Recovered/Not Resolved]

NARRATIVE: CASE EVENT DATE: 20200501
